FAERS Safety Report 9032136 (Version 1)
Quarter: 2013Q1

REPORT INFORMATION
  Report Type: Report from Study
  Country: US (occurrence: US)
  Receive Date: 20130122
  Receipt Date: 20130122
  Transmission Date: 20140127
  Serious: Yes (Hospitalization)
  Sender: FDA-Public Use
  Company Number: US-PFIZER INC-2012253908

PATIENT
  Age: 53 Year
  Sex: Male

DRUGS (5)
  1. CYTARABINE [Suspect]
     Indication: ACUTE MYELOID LEUKAEMIA
     Dosage: 40200 MG TOTAL
     Route: 042
     Dates: start: 20120328
  2. VORICONAZOLE [Suspect]
     Dosage: UNK
  3. SPRYCEL [Suspect]
     Indication: ACUTE MYELOID LEUKAEMIA
     Dosage: 1900 MG TOTAL
     Route: 048
     Dates: start: 20120328
  4. DAUNORUBICIN [Suspect]
     Indication: ACUTE MYELOID LEUKAEMIA
     Dosage: UNK, CYCLIC
     Dates: start: 20120328
  5. CASPOFUNGIN [Suspect]
     Dosage: UNK

REACTIONS (6)
  - Neutrophil count decreased [Recovered/Resolved]
  - Febrile neutropenia [Recovered/Resolved]
  - Aspartate aminotransferase increased [Recovering/Resolving]
  - Alanine aminotransferase increased [Recovering/Resolving]
  - Device related infection [Recovered/Resolved]
  - Neutrophil count decreased [Unknown]
